FAERS Safety Report 9131266 (Version 3)
Quarter: 2013Q4

REPORT INFORMATION
  Report Type: Spontaneous
  Country: JP (occurrence: JP)
  Receive Date: 20130301
  Receipt Date: 20131001
  Transmission Date: 20140711
  Serious: Yes (Hospitalization, Other)
  Sender: FDA-Public Use
  Company Number: JP-VERTEX PHARMACEUTICALS INC.-2013-002897

PATIENT
  Age: 59 Year
  Sex: Male

DRUGS (9)
  1. TELAVIC [Suspect]
     Indication: CHRONIC HEPATITIS C
     Dosage: 1500 MG, QD
     Route: 048
     Dates: start: 20121016, end: 20130109
  2. REBETOL [Suspect]
     Indication: CHRONIC HEPATITIS C
     Dosage: 800 MG, QD
     Route: 048
     Dates: start: 20121016, end: 20121219
  3. REBETOL [Suspect]
     Dosage: 600 MG, QD
     Route: 048
     Dates: start: 20121219, end: 20130109
  4. REBETOL [Suspect]
     Dosage: 400 MG, QD
     Route: 048
     Dates: start: 20130109, end: 20130112
  5. PEGINTRON [Suspect]
     Indication: CHRONIC HEPATITIS C
     Dosage: 1.5 ?G/KG,QW
     Route: 058
     Dates: start: 20121016, end: 20130109
  6. URSO [Concomitant]
     Dosage: 300 MG, QD
     Route: 048
  7. CONIEL [Concomitant]
     Dosage: 2 TABS, QD
     Route: 048
  8. DIOVAN [Concomitant]
     Dosage: 80 MG, QD
     Route: 048
  9. GLYCYRON [Concomitant]
     Dosage: 3 DF, QD
     Route: 048

REACTIONS (6)
  - Interstitial lung disease [Recovered/Resolved]
  - Oedema [Recovered/Resolved]
  - Renal failure [Recovered/Resolved]
  - Retinopathy [Recovered/Resolved]
  - Anaemia [Recovered/Resolved]
  - Hyperuricaemia [Recovered/Resolved]
